FAERS Safety Report 8123656-9 (Version None)
Quarter: 2012Q1

REPORT INFORMATION
  Report Type: 
  Country: None (occurrence: None)
  Receive Date: 20120208
  Receipt Date: 20120203
  Transmission Date: 20120608
  Serious: Yes (Hospitalization, Other)
  Sender: FDA-Public Use
  Company Number: PHEH2011US008828

PATIENT
  Sex: Male

DRUGS (2)
  1. HYDROXYUREA [Concomitant]
     Dosage: UNK
     Dates: start: 20120130
  2. EXJADE [Suspect]
     Indication: MYELODYSPLASTIC SYNDROME
     Dosage: 3000 MG, QD
     Route: 048
     Dates: start: 20111103, end: 20120130

REACTIONS (13)
  - DELUSION [None]
  - DEVICE RELATED INFECTION [None]
  - PYREXIA [None]
  - DIARRHOEA [None]
  - NAUSEA [None]
  - NASAL CONGESTION [None]
  - RASH [None]
  - PLATELET COUNT DECREASED [None]
  - SOMNOLENCE [None]
  - NEOPLASM MALIGNANT [None]
  - VOMITING [None]
  - NEOPLASM PROGRESSION [None]
  - FREQUENT BOWEL MOVEMENTS [None]
